FAERS Safety Report 5449540-7 (Version None)
Quarter: 2007Q3

REPORT INFORMATION
  Report Type: 
  Country: None (occurrence: None)
  Receive Date: 20070907
  Receipt Date: 20070824
  Transmission Date: 20080115
  Serious: Yes (Hospitalization, Other)
  Sender: FDA-Public Use
  Company Number: 2007US001541

PATIENT
  Age: 64 Year
  Sex: Male

DRUGS (12)
  1. PROGRAF [Suspect]
     Indication: PROPHYLAXIS AGAINST TRANSPLANT REJECTION
     Dosage: 9 MG, UID/QD, ORAL
     Route: 048
     Dates: start: 20070323, end: 20070621
  2. MYCOPHENOLATE MOFETIL [Suspect]
     Indication: PROPHYLAXIS AGAINST TRANSPLANT REJECTION
     Dosage: 750 MG, UID/QD, ORAL
     Route: 048
     Dates: start: 20070316, end: 20070620
  3. PRLOSEC [Concomitant]
  4. BACTRIM [Concomitant]
  5. MAGNESIUM SULFATE [Concomitant]
  6. URSODIOL                                          (URSODEOXYCHOLIC ACI [Concomitant]
  7. LASIX [Concomitant]
  8. VALCYTE [Concomitant]
  9. STARLIX [Concomitant]
  10. INSULIN GLARGINE                      (INSULIN GLARGINE) [Concomitant]
  11. ULTRAM [Concomitant]
  12. DILAUDID [Concomitant]

REACTIONS (25)
  - ADRENAL MASS [None]
  - ARTERIOSCLEROSIS CORONARY ARTERY [None]
  - ATELECTASIS [None]
  - BILIARY DILATATION [None]
  - BILOMA [None]
  - BRONCHIECTASIS [None]
  - DECREASED APPETITE [None]
  - DILATATION INTRAHEPATIC DUCT ACQUIRED [None]
  - DIVERTICULUM INTESTINAL [None]
  - FEBRILE NEUTROPENIA [None]
  - GASTRITIS FUNGAL [None]
  - GASTROINTESTINAL DISORDER [None]
  - GASTROINTESTINAL FUNGAL INFECTION [None]
  - GYNAECOMASTIA [None]
  - HEPATIC CYST [None]
  - HYPERKERATOSIS [None]
  - LUNG ABSCESS [None]
  - MENTAL STATUS CHANGES [None]
  - NERVOUS SYSTEM DISORDER [None]
  - PLATELET COUNT DECREASED [None]
  - PLEURAL EFFUSION [None]
  - PULMONARY CONGESTION [None]
  - SPLENOMEGALY [None]
  - WEIGHT DECREASED [None]
  - WHITE BLOOD CELL COUNT DECREASED [None]
